FAERS Safety Report 7223183-7 (Version None)
Quarter: 2011Q1

REPORT INFORMATION
  Report Type: 
  Country: None (occurrence: None)
  Receive Date: 20110112
  Receipt Date: 20100223
  Transmission Date: 20110831
  Serious: No
  Sender: FDA-Public Use
  Company Number: US-ALLERGAN-1002400US

PATIENT
  Age: 55 Year
  Sex: Female

DRUGS (4)
  1. ZYRTEC [Concomitant]
  2. FLOVENT [Concomitant]
  3. RESTASIS [Suspect]
     Indication: DRY EYE
     Dosage: 1 GTT, BID
     Dates: start: 20091201, end: 20100211
  4. SINGULAIR [Concomitant]

REACTIONS (3)
  - BLISTER [None]
  - ANXIETY [None]
  - BLOOD PRESSURE INCREASED [None]
